FAERS Safety Report 5046529-7 (Version None)
Quarter: 2006Q3

REPORT INFORMATION
  Report Type: 
  Country: None (occurrence: None)
  Receive Date: 20060706
  Receipt Date: 20060706
  Transmission Date: 20061208
  Serious: Yes (Other)
  Sender: FDA-Public Use
  Company Number: None

PATIENT
  Age: 56 Year
  Sex: Male

DRUGS (14)
  1. OXALIPLATIN [Suspect]
     Indication: RECTAL CANCER
     Dosage: 170 MG IV 5/9, 5/23 IV
     Route: 042
     Dates: start: 20060509, end: 20060523
  2. LEUCOVORIN CALCIUM [Suspect]
     Dosage: 400 MG IV 5/9, 5/23, 6/5, IV
     Route: 042
     Dates: start: 20060509, end: 20060523
  3. ZOFRAN [Concomitant]
  4. LEUCOVORIN CALCIUM [Concomitant]
  5. DEXTROSE 5% [Concomitant]
  6. OXALIPLATIN [Concomitant]
  7. BELT, HOLLISTER, MED #7300 USE BELT-S [Concomitant]
  8. BENZOYL PEROXIDE [Concomitant]
  9. CLAMP, DRAINAGE STOMA BAGE [Concomitant]
  10. DIPHENHYDRAMINE HCL [Concomitant]
  11. FLANGE [Concomitant]
  12. MYLANTA/BENADRYL/XYLOCAINE VISC [Concomitant]
  13. OMEPRAZOLE [Concomitant]
  14. POUCH, DRAINABLE [Concomitant]

REACTIONS (4)
  - BURNING SENSATION [None]
  - FLUSHING [None]
  - INFUSION RELATED REACTION [None]
  - PRURITUS [None]
